FAERS Safety Report 23524452 (Version 3)
Quarter: 2024Q2

REPORT INFORMATION
  Report Type: Spontaneous
  Country: US (occurrence: US)
  Receive Date: 20240214
  Receipt Date: 20240408
  Transmission Date: 20240716
  Serious: Yes (Other)
  Sender: FDA-Public Use
  Company Number: US-BRISTOL-MYERS SQUIBB COMPANY-2024-024087

PATIENT
  Age: 69 Year
  Sex: Female

DRUGS (1)
  1. POMALYST [Suspect]
     Active Substance: POMALIDOMIDE
     Indication: Plasma cell myeloma
     Dosage: FREQUENCY: TAKE 1 CAPSULE BY MOUTH EVERY DAY FOR 14 DAYS THEN STOP FOR 14 DAYS. DO NOT CRUSH, CHEW O
     Route: 048
     Dates: start: 20200108

REACTIONS (3)
  - Pruritus [Not Recovered/Not Resolved]
  - Off label use [Unknown]
  - Sinusitis [Recovering/Resolving]
